FAERS Safety Report 9913555 (Version 2)
Quarter: 2014Q2

REPORT INFORMATION
  Report Type: Spontaneous
  Country: US (occurrence: US)
  Receive Date: 20140220
  Receipt Date: 20140408
  Transmission Date: 20141212
  Serious: Yes (Other)
  Sender: FDA-Public Use
  Company Number: US-FRI-1000054317

PATIENT
  Age: 33 Year
  Sex: Female
  Weight: 106.14 kg

DRUGS (11)
  1. FETZIMA [Suspect]
     Indication: DEPRESSION
     Dosage: 20 MG
     Route: 048
     Dates: start: 20140106, end: 20140112
  2. FETZIMA [Suspect]
     Indication: DEPRESSION
     Dosage: 40 MG
     Route: 048
     Dates: start: 20140113, end: 20140116
  3. SEROQUEL [Suspect]
     Dosage: 15 TABLETS ONCE
     Dates: start: 20140116, end: 20140116
  4. HYDROCODONE [Suspect]
     Dosage: 30 TABLETS ONCE
     Dates: start: 20140116, end: 20140116
  5. CELEXA [Concomitant]
     Dosage: 40 MG
  6. RISPERDAL [Concomitant]
  7. LAMICTAL [Concomitant]
     Dosage: 400 MG
  8. ARMOUR THYROID [Concomitant]
     Dosage: 15 MG
  9. MAXALT [Concomitant]
     Dosage: 10 MG PRN
  10. VIT D [Concomitant]
     Dosage: 5000 IU
  11. PAPAYA [Concomitant]

REACTIONS (4)
  - Suicidal ideation [Recovered/Resolved]
  - Suicide attempt [Recovered/Resolved]
  - Intentional overdose [Recovered/Resolved]
  - Vomiting [Recovered/Resolved]
